FAERS Safety Report 5955603-X (Version None)
Quarter: 2008Q4

REPORT INFORMATION
  Report Type: 
  Country: None (occurrence: None)
  Receive Date: 20081117
  Receipt Date: 20081106
  Transmission Date: 20090506
  Serious: Yes (Death)
  Sender: FDA-Public Use
  Company Number: KR-PFIZER INC-2008068305

PATIENT
  Sex: Male
  Weight: 50 kg

DRUGS (7)
  1. CHAMPIX [Suspect]
     Indication: SMOKING CESSATION THERAPY
     Route: 048
     Dates: start: 20080204, end: 20080101
  2. BEROTEC [Concomitant]
     Indication: ASTHMA
     Dates: start: 20080128, end: 20080404
  3. BEROTEC [Concomitant]
     Indication: CHRONIC OBSTRUCTIVE PULMONARY DISEASE
  4. ASTHCONTIN [Concomitant]
     Indication: ASTHMA
     Dates: start: 20080128, end: 20080404
  5. ASTHCONTIN [Concomitant]
     Indication: CHRONIC OBSTRUCTIVE PULMONARY DISEASE
  6. VENTOLIN [Concomitant]
     Indication: ASTHMA
     Dates: start: 20080128, end: 20080404
  7. VENTOLIN [Concomitant]
     Indication: CHRONIC OBSTRUCTIVE PULMONARY DISEASE

REACTIONS (1)
  - DISEASE PROGRESSION [None]
